FAERS Safety Report 7360969-2 (Version None)
Quarter: 2011Q1

REPORT INFORMATION
  Report Type: 
  Country: None (occurrence: None)
  Receive Date: 20110318
  Receipt Date: 20110309
  Transmission Date: 20110831
  Serious: Yes (Death, Hospitalization, Disabling)
  Sender: FDA-Public Use
  Company Number: JP-PFIZER INC-2010177574

PATIENT
  Age: 77 Year
  Sex: Female
  Weight: 41.5 kg

DRUGS (7)
  1. VILDAGLIPTIN [Suspect]
     Indication: DIABETES MELLITUS
     Dosage: UNK
     Route: 048
     Dates: start: 20101126, end: 20101203
  2. SYMMETREL [Concomitant]
     Indication: CEREBRAL INFARCTION
     Dosage: UNK
     Route: 048
     Dates: end: 20101203
  3. MUCODYNE [Concomitant]
     Dosage: UNK
     Route: 048
     Dates: end: 20101203
  4. SENNOSIDE A+B [Concomitant]
     Indication: CONSTIPATION
     Dosage: UNK
     Route: 048
  5. VILDAGLIPTIN [Suspect]
     Indication: HYPERTENSION
  6. LIPITOR [Suspect]
     Indication: HYPERLIPIDAEMIA
     Dosage: 5 MG, UID/QD
     Route: 048
     Dates: start: 20101126, end: 20101203
  7. PLAVIX [Concomitant]
     Indication: CEREBRAL INFARCTION
     Dosage: UNK
     Route: 048

REACTIONS (3)
  - PNEUMONIA [None]
  - TRACHEAL STENOSIS [None]
  - GENERALISED ERYTHEMA [None]
